FAERS Safety Report 9950249 (Version 1)
Quarter: 2014Q1

REPORT INFORMATION
  Report Type: Report from Study
  Country: US (occurrence: US)
  Receive Date: 20140304
  Receipt Date: 20140304
  Transmission Date: 20141002
  Serious: Yes (Other)
  Sender: FDA-Public Use
  Company Number: US-ABBVIE-13P-163-1065752-00

PATIENT
  Sex: Male

DRUGS (2)
  1. HUMIRA [Suspect]
     Indication: COLITIS ULCERATIVE
     Dates: start: 201003
  2. HUMIRA [Suspect]
     Indication: ARTHRITIS

REACTIONS (2)
  - Pelvic pouch procedure [Recovered/Resolved]
  - Arthritis [Not Recovered/Not Resolved]
